FAERS Safety Report 11157617 (Version 2)
Quarter: 2015Q4

REPORT INFORMATION
  Report Type: Spontaneous
  Country: None (occurrence: US)
  Receive Date: 20150601
  Receipt Date: 20151125
  Transmission Date: 20160304
  Serious: Yes (Other)
  Sender: FDA-Public Use
  Company Number: PR-AE15-000410

PATIENT
  Age: 51 Year
  Sex: Female

DRUGS (1)
  1. GOODYS EXTRA STRENGTH [Suspect]
     Active Substance: ACETAMINOPHEN\ASPIRIN\CAFFEINE
     Route: 048
     Dates: start: 20151104, end: 20151104

REACTIONS (9)
  - Hypersensitivity [Unknown]
  - Stomatitis [None]
  - Aphasia [Unknown]
  - Muscular weakness [Unknown]
  - Hypoaesthesia oral [Unknown]
  - Mouth injury [Unknown]
  - Loss of consciousness [Unknown]
  - Swollen tongue [Unknown]
  - Oral herpes [Unknown]
